FAERS Safety Report 19972444 (Version 1)
Quarter: 2021Q4

REPORT INFORMATION
  Report Type: Spontaneous
  Country: DE (occurrence: DE)
  Receive Date: 20211020
  Receipt Date: 20211020
  Transmission Date: 20220303
  Serious: Yes (Other)
  Sender: FDA-Public Use
  Company Number: DE-002147023-NVSC2021DE168072

PATIENT
  Sex: Female

DRUGS (2)
  1. CETIRIZINE [Suspect]
     Active Substance: CETIRIZINE HYDROCHLORIDE
     Indication: Urticaria chronic
     Dosage: 1 DOSAGE FORM
     Route: 065
     Dates: start: 2021
  2. XOLAIR [Suspect]
     Active Substance: OMALIZUMAB
     Indication: Urticaria chronic
     Dosage: 2 DF (INJECTIONS) EVERY 4 WEEKS
     Route: 065
     Dates: start: 2017

REACTIONS (11)
  - Angioedema [Recovering/Resolving]
  - Symptom recurrence [Recovering/Resolving]
  - Skin burning sensation [Recovering/Resolving]
  - Pain [Recovering/Resolving]
  - Paraesthesia [Recovering/Resolving]
  - Depression [Recovering/Resolving]
  - Dyspnoea [Unknown]
  - Diarrhoea [Unknown]
  - Vomiting [Unknown]
  - Urticaria [Recovering/Resolving]
  - Pruritus [Recovering/Resolving]

NARRATIVE: CASE EVENT DATE: 20210101
